FAERS Safety Report 7048513-0 (Version None)
Quarter: 2010Q4

REPORT INFORMATION
  Report Type: 
  Country: None (occurrence: None)
  Receive Date: 20101007
  Receipt Date: 20100928
  Transmission Date: 20110411
  Serious: Yes (Hospitalization)
  Sender: FDA-Public Use
  Company Number: B0677500A

PATIENT
  Age: 68 Year
  Sex: Female

DRUGS (1)
  1. ROPINIROLE HYDROCHLORIDE [Suspect]
     Indication: RESTLESS LEGS SYNDROME
     Dosage: 25 MG / THREE TIME PER DAY

REACTIONS (7)
  - ASTHENIA [None]
  - CHOLURIA [None]
  - FAECES PALE [None]
  - HEPATOTOXICITY [None]
  - JAUNDICE [None]
  - NAUSEA [None]
  - SERUM FERRITIN INCREASED [None]
